FAERS Safety Report 20084460 (Version 6)
Quarter: 2022Q1

REPORT INFORMATION
  Report Type: Spontaneous
  Country: US (occurrence: US)
  Receive Date: 20211118
  Receipt Date: 20220318
  Transmission Date: 20220423
  Serious: Yes (Life-Threatening, Hospitalization, Other)
  Sender: FDA-Public Use
  Company Number: US-GLAXOSMITHKLINE-US2021234264

PATIENT
  Sex: Female

DRUGS (4)
  1. ZEJULA [Suspect]
     Active Substance: NIRAPARIB
     Indication: Ovarian cancer
     Dosage: 300 MG, QD, PM
     Dates: start: 20211023, end: 20211124
  2. ZEJULA [Suspect]
     Active Substance: NIRAPARIB
     Dosage: 300 MG, QD
     Route: 048
  3. ZEJULA [Suspect]
     Active Substance: NIRAPARIB
     Dosage: 200 MG, QD
     Dates: start: 20220106
  4. ZEJULA [Suspect]
     Active Substance: NIRAPARIB
     Dosage: 100 MG, QD

REACTIONS (15)
  - Near death experience [Unknown]
  - Fall [Unknown]
  - Traumatic haemorrhage [Unknown]
  - Platelet count decreased [Not Recovered/Not Resolved]
  - Resting tremor [Unknown]
  - Fatigue [Unknown]
  - Erythema [Unknown]
  - Contusion [Unknown]
  - Skin laceration [Unknown]
  - Eye swelling [Unknown]
  - Skin discolouration [Unknown]
  - Visual impairment [Unknown]
  - Headache [Unknown]
  - Dizziness [Unknown]
  - Constipation [Unknown]
